FAERS Safety Report 21139239 (Version 1)
Quarter: 2022Q3

REPORT INFORMATION
  Report Type: Spontaneous
  Country: US (occurrence: None)
  Receive Date: 20220727
  Receipt Date: 20220727
  Transmission Date: 20221027
  Serious: No
  Sender: FDA-Public Use
  Company Number: None

PATIENT
  Age: 78 Year
  Sex: Male
  Weight: 75.6 kg

DRUGS (10)
  1. PAXLOVID [Suspect]
     Active Substance: NIRMATRELVIR\RITONAVIR
     Indication: COVID-19
     Dates: start: 20220717, end: 20220722
  2. LOSARTAN [Concomitant]
     Active Substance: LOSARTAN
  3. TOPROL [Concomitant]
  4. NORVASC [Concomitant]
  5. HYDROCHLOROTHIAZIDE [Concomitant]
     Active Substance: HYDROCHLOROTHIAZIDE
  6. finestaride [Concomitant]
  7. LIPITOR [Concomitant]
     Active Substance: ATORVASTATIN CALCIUM
  8. VITAMIN D [Concomitant]
     Active Substance: VITAMIN D NOS
  9. FIBERCOM [Concomitant]
  10. coenzyme q [Concomitant]

REACTIONS (1)
  - COVID-19 [None]

NARRATIVE: CASE EVENT DATE: 20220725
